FAERS Safety Report 17014944 (Version 1)
Quarter: 2019Q4

REPORT INFORMATION
  Report Type: Spontaneous
  Country: IT (occurrence: IT)
  Receive Date: 20191111
  Receipt Date: 20191111
  Transmission Date: 20200122
  Serious: Yes (Life-Threatening, Hospitalization, Other)
  Sender: FDA-Public Use
  Company Number: IT-SCIEGEN PHARMACEUTICALS INC-2019SCILIT00349

PATIENT
  Age: 55 Year
  Sex: Female

DRUGS (12)
  1. BETAHISTINE [Concomitant]
     Active Substance: BETAHISTINE
  2. BIPERIDEN [Concomitant]
     Active Substance: BIPERIDEN
  3. PANTOPRAZOLE [Concomitant]
     Active Substance: PANTOPRAZOLE
  4. ADEMETIONINE [Suspect]
     Active Substance: ADEMETIONINE
  5. DELORAZEPAM [Concomitant]
     Active Substance: DELORAZEPAM
  6. ROSUVASTATIN. [Concomitant]
     Active Substance: ROSUVASTATIN
  7. MACROGOL [Concomitant]
     Active Substance: POLYETHYLENE GLYCOLS
  8. SERTRALINE HYDROCHLORIDE TABLETS [Suspect]
     Active Substance: SERTRALINE HYDROCHLORIDE
  9. TRAZODONE [Interacting]
     Active Substance: TRAZODONE HYDROCHLORIDE
  10. LURASIDONE [Suspect]
     Active Substance: LURASIDONE
  11. FENOFIBRATE. [Concomitant]
     Active Substance: FENOFIBRATE
  12. OLMESARTAN MEDOXOMIL/AMLODIPINE [Concomitant]

REACTIONS (2)
  - Drug interaction [Recovered/Resolved]
  - Serotonin syndrome [Recovered/Resolved]
